FAERS Safety Report 9699005 (Version 2)
Quarter: 2013Q4

REPORT INFORMATION
  Report Type: Spontaneous
  Country: US (occurrence: US)
  Receive Date: 20131120
  Receipt Date: 20131219
  Transmission Date: 20140711
  Serious: Yes (Other)
  Sender: FDA-Public Use
  Company Number: US-PERRIGO-13US011761

PATIENT
  Age: 34 Year
  Sex: Female
  Weight: 68.93 kg

DRUGS (4)
  1. FLU + SEVERE COLD + COUGH NIGHTTIME 964 [Suspect]
     Indication: NASOPHARYNGITIS
     Dosage: 1 PACKET, SINGLE
     Route: 048
     Dates: start: 20131102, end: 20131102
  2. FLU + SEVERE COLD + COUGH NIGHTTIME 964 [Suspect]
     Indication: INFLUENZA
     Dosage: 1 PACKET, SINGLE
     Route: 048
     Dates: start: 20131104, end: 20131104
  3. MULTIVITAMIN                       /00097801/ [Concomitant]
     Indication: SUPPLEMENTATION THERAPY
     Dosage: 1 TABLET, DAILY
     Route: 048
  4. NUVARING [Concomitant]
     Indication: CONTRACEPTION
     Dosage: UNK, UNK
     Route: 067

REACTIONS (5)
  - Hypersensitivity [Recovered/Resolved]
  - Pharyngeal oedema [Recovered/Resolved]
  - Chest discomfort [Recovered/Resolved]
  - Dysphagia [Recovered/Resolved]
  - Throat irritation [Recovered/Resolved]
